FAERS Safety Report 5605821-5 (Version None)
Quarter: 2008Q1

REPORT INFORMATION
  Report Type: 
  Country: None (occurrence: None)
  Receive Date: 20080129
  Receipt Date: 20080121
  Transmission Date: 20080703
  Serious: Yes (Hospitalization)
  Sender: FDA-Public Use
  Company Number: PHEH2008US01066

PATIENT
  Sex: Female

DRUGS (3)
  1. REMICADE [Concomitant]
  2. METHOTREXATE [Concomitant]
  3. RECLAST [Suspect]
     Dosage: 5 G, UNK

REACTIONS (2)
  - HYPERTENSION [None]
  - PULMONARY OEDEMA [None]
